FAERS Safety Report 7793063-7 (Version None)
Quarter: 2011Q4

REPORT INFORMATION
  Report Type: 
  Country: None (occurrence: None)
  Receive Date: 20111003
  Receipt Date: 20110922
  Transmission Date: 20120403
  Serious: Yes (Hospitalization)
  Sender: FDA-Public Use
  Company Number: JP-JNJFOC-20110703826

PATIENT
  Sex: Male
  Weight: 48 kg

DRUGS (9)
  1. REMICADE [Suspect]
     Route: 042
     Dates: start: 20110111
  2. REMICADE [Suspect]
     Indication: BEHCET'S SYNDROME
     Route: 042
     Dates: start: 20100224
  3. REMICADE [Suspect]
     Route: 042
     Dates: start: 20101130
  4. REMICADE [Suspect]
     Route: 042
     Dates: start: 20101215
  5. IMURAN [Suspect]
     Indication: BEHCET'S SYNDROME
     Route: 048
     Dates: end: 20110209
  6. PENTASA [Concomitant]
     Indication: BEHCET'S SYNDROME
     Route: 048
     Dates: end: 20110209
  7. BACTAR [Concomitant]
     Indication: PROPHYLAXIS
     Route: 048
     Dates: end: 20110209
  8. REMICADE [Suspect]
     Route: 042
     Dates: start: 20100305
  9. PREDNISOLONE [Suspect]
     Indication: BEHCET'S SYNDROME
     Route: 048
     Dates: start: 20101228

REACTIONS (3)
  - PNEUMONIA [None]
  - CYTOMEGALOVIRUS TEST POSITIVE [None]
  - MENINGITIS CRYPTOCOCCAL [None]
